FAERS Safety Report 25797247 (Version 2)
Quarter: 2025Q3

REPORT INFORMATION
  Report Type: Spontaneous
  Country: EU (occurrence: EU)
  Receive Date: 20250912
  Receipt Date: 20250924
  Transmission Date: 20251020
  Serious: Yes (Other)
  Sender: ACCORD
  Company Number: EU-Accord-504108

PATIENT
  Age: 7 Decade
  Sex: Male

DRUGS (12)
  1. FLUOROURACIL [Suspect]
     Active Substance: FLUOROURACIL
     Indication: Rectal adenocarcinoma
     Dates: start: 202204, end: 202312
  2. OXALIPLATIN [Suspect]
     Active Substance: OXALIPLATIN
     Indication: Rectal adenocarcinoma
     Dates: start: 202204, end: 202312
  3. FOLIC ACID [Suspect]
     Active Substance: FOLIC ACID
     Indication: Rectal adenocarcinoma
     Dates: start: 202204, end: 202312
  4. PANITUMUMAB [Suspect]
     Active Substance: PANITUMUMAB
     Indication: Rectal adenocarcinoma
     Dates: start: 202204, end: 202312
  5. FLUOROURACIL [Suspect]
     Active Substance: FLUOROURACIL
     Indication: Metastases to liver
     Dates: start: 202204, end: 202312
  6. FLUOROURACIL [Suspect]
     Active Substance: FLUOROURACIL
     Indication: Metastases to lymph nodes
     Dates: start: 202204, end: 202312
  7. OXALIPLATIN [Suspect]
     Active Substance: OXALIPLATIN
     Indication: Metastases to lymph nodes
     Dates: start: 202204, end: 202312
  8. OXALIPLATIN [Suspect]
     Active Substance: OXALIPLATIN
     Indication: Metastases to liver
     Dates: start: 202204, end: 202312
  9. PANITUMUMAB [Suspect]
     Active Substance: PANITUMUMAB
     Indication: Metastases to liver
     Dates: start: 202204, end: 202312
  10. PANITUMUMAB [Suspect]
     Active Substance: PANITUMUMAB
     Indication: Metastases to lymph nodes
     Dates: start: 202204, end: 202312
  11. FOLIC ACID [Suspect]
     Active Substance: FOLIC ACID
     Indication: Metastases to liver
     Dates: start: 202204, end: 202312
  12. FOLIC ACID [Suspect]
     Active Substance: FOLIC ACID
     Indication: Metastases to lymph nodes
     Dates: start: 202204, end: 202312

REACTIONS (3)
  - Neuropathy peripheral [Unknown]
  - Rash [Unknown]
  - Drug resistance [Unknown]
